FAERS Safety Report 23176233 (Version 1)
Quarter: 2023Q4

REPORT INFORMATION
  Report Type: Spontaneous
  Country: KR (occurrence: KR)
  Receive Date: 20231113
  Receipt Date: 20231113
  Transmission Date: 20240110
  Serious: Yes (Death, Other)
  Sender: FDA-Public Use
  Company Number: KR-SA-SAC20231110000295

PATIENT
  Age: 78 Year
  Sex: Female
  Weight: 58.7 kg

DRUGS (1)
  1. CLOPIDOGREL BISULFATE [Suspect]
     Active Substance: CLOPIDOGREL BISULFATE
     Indication: Cardiac disorder
     Dosage: 75 MG, QD
     Route: 048
     Dates: start: 20160414

REACTIONS (6)
  - Dyspnoea [Fatal]
  - Orthopnoea [Fatal]
  - Gastrointestinal neoplasm [Fatal]
  - Death [Fatal]
  - Anaemia [Fatal]
  - Melaena [Fatal]

NARRATIVE: CASE EVENT DATE: 20160725
